FAERS Safety Report 6224004-1 (Version None)
Quarter: 2009Q2

REPORT INFORMATION
  Report Type: 
  Country: None (occurrence: None)
  Receive Date: 20090612
  Receipt Date: 20090305
  Transmission Date: 20091009
  Serious: No
  Sender: FDA-Public Use
  Company Number: US-ABBOTT-09P-163-0561083-00

PATIENT
  Sex: Female
  Weight: 66.738 kg

DRUGS (13)
  1. HUMIRA [Suspect]
     Indication: RHEUMATOID ARTHRITIS
     Route: 058
     Dates: start: 20060601, end: 20070101
  2. HUMIRA [Suspect]
     Route: 058
     Dates: start: 20070101
  3. ACTONEL [Concomitant]
     Indication: OSTEOPOROSIS
     Route: 048
  4. EFFEXOR XR [Concomitant]
     Indication: FIBROMYALGIA
     Route: 048
  5. SEROQUEL [Concomitant]
     Indication: FIBROMYALGIA
     Route: 048
  6. CALCIUM WITH D [Concomitant]
     Indication: MINERAL SUPPLEMENTATION
     Route: 048
  7. ZOCOR [Concomitant]
     Indication: BLOOD CHOLESTEROL
     Route: 048
  8. LORATADINE [Concomitant]
     Indication: SEASONAL ALLERGY
     Route: 048
  9. NASACORT [Concomitant]
     Indication: SEASONAL ALLERGY
     Route: 045
  10. ADVIL [Concomitant]
     Indication: PAIN
     Route: 048
  11. PROPOXYPHENE-N [Concomitant]
     Indication: PAIN
     Route: 048
  12. FOLIC ACID [Concomitant]
     Indication: VITAMIN SUPPLEMENTATION
     Route: 048
  13. METHOTREXATE [Concomitant]
     Indication: RHEUMATOID ARTHRITIS

REACTIONS (2)
  - INJECTION SITE IRRITATION [None]
  - PAIN [None]
